APPROVED DRUG PRODUCT: MESALAMINE
Active Ingredient: MESALAMINE
Strength: 1GM
Dosage Form/Route: SUPPOSITORY;RECTAL
Application: A219028 | Product #001 | TE Code: AB
Applicant: RISING PHARMA HOLDINGS INC
Approved: Apr 14, 2025 | RLD: No | RS: No | Type: RX